FAERS Safety Report 6080022-8 (Version None)
Quarter: 2009Q1

REPORT INFORMATION
  Report Type: 
  Country: None (occurrence: None)
  Receive Date: 20090217
  Receipt Date: 20090207
  Transmission Date: 20090719
  Serious: Yes (Hospitalization)
  Sender: FDA-Public Use
  Company Number: US-AVENTIS-200911002US

PATIENT
  Sex: Female

DRUGS (3)
  1. LANTUS [Suspect]
     Route: 058
  2. OPTICLIK (INSULIN INJECTION PEN) [Suspect]
     Dates: start: 20050101
  3. NOVOLOG [Concomitant]
     Dosage: DOSE: UNK

REACTIONS (3)
  - HYPERGLYCAEMIA [None]
  - HYPOGLYCAEMIA [None]
  - PNEUMONIA [None]
